FAERS Safety Report 5097106-3 (Version None)
Quarter: 2006Q3

REPORT INFORMATION
  Report Type: 
  Country: None (occurrence: None)
  Receive Date: 20060901
  Receipt Date: 20060819
  Transmission Date: 20061208
  Serious: Yes (Hospitalization)
  Sender: FDA-Public Use
  Company Number: 2006PV019715

PATIENT
  Age: 42 Year
  Sex: Female
  Weight: 156.0374 kg

DRUGS (11)
  1. BYETTA [Suspect]
     Indication: DIABETES MELLITUS NON-INSULIN-DEPENDENT
     Dosage: SEE IMAGE, SC
     Route: 058
     Dates: start: 20060501, end: 20060601
  2. BYETTA [Suspect]
     Indication: DIABETES MELLITUS NON-INSULIN-DEPENDENT
     Dosage: SEE IMAGE, SC
     Route: 058
     Dates: start: 20060601
  3. GLYBURIDE [Concomitant]
  4. GLUCOTROL [Concomitant]
  5. HUMERA [Concomitant]
  6. DOLOBID [Concomitant]
  7. PRINIVIL [Concomitant]
  8. LIPITOR [Concomitant]
  9. VITAMIN D [Concomitant]
  10. PREVACID [Concomitant]
  11. HYDROCHLOROTHIAZIDE [Concomitant]

REACTIONS (6)
  - CALCULUS URINARY [None]
  - FLANK PAIN [None]
  - MUSCLE SPASMS [None]
  - SEPSIS [None]
  - VOMITING [None]
  - WHITE BLOOD CELL COUNT INCREASED [None]
